FAERS Safety Report 21938378 (Version 1)
Quarter: 2023Q1

REPORT INFORMATION
  Report Type: Spontaneous
  Country: DE (occurrence: DE)
  Receive Date: 20230201
  Receipt Date: 20230201
  Transmission Date: 20230418
  Serious: Yes (Other)
  Sender: FDA-Public Use
  Company Number: DE-BRISTOL-MYERS SQUIBB COMPANY-2023-005454

PATIENT
  Age: 82 Year
  Sex: Female
  Weight: 69 kg

DRUGS (11)
  1. DEXAMETHASONE [Suspect]
     Active Substance: DEXAMETHASONE
     Indication: Plasma cell myeloma
     Route: 065
     Dates: start: 20210605, end: 20221117
  2. REVLIMID [Suspect]
     Active Substance: LENALIDOMIDE
     Indication: Plasma cell myeloma
     Dosage: DAY 1-14 OF A 21DAY CYCLE
     Route: 065
     Dates: start: 20210517, end: 20210521
  3. REVLIMID [Suspect]
     Active Substance: LENALIDOMIDE
     Dosage: DAY 1-21 OF A 28DAY CYCLE
     Route: 065
     Dates: start: 20210605, end: 20210625
  4. REVLIMID [Suspect]
     Active Substance: LENALIDOMIDE
     Dosage: DAY 1-21 OF A 28DAY CYCLE
     Route: 065
     Dates: start: 20210705, end: 20220117
  5. REVLIMID [Suspect]
     Active Substance: LENALIDOMIDE
     Dosage: DAY 1-21 OF A 28DAY CYCLE
     Route: 065
     Dates: start: 20220406, end: 20221116
  6. DARATUMUMAB [Suspect]
     Active Substance: DARATUMUMAB
     Indication: Plasma cell myeloma
     Route: 065
     Dates: start: 20210520, end: 20210521
  7. DARATUMUMAB [Suspect]
     Active Substance: DARATUMUMAB
     Dosage: WEEKLY (DAY 1,8,15,21 OF A 28DAY CYCLE)
     Route: 065
     Dates: start: 20210611
  8. DARATUMUMAB [Suspect]
     Active Substance: DARATUMUMAB
     Dosage: WEEKLY (DAY 1,8,15,21 OF A 28DAY CYCLE)
     Route: 065
     Dates: start: 20210705, end: 20210802
  9. DARATUMUMAB [Suspect]
     Active Substance: DARATUMUMAB
     Dosage: BIWEEKLY (DAY 1,15 OF A 28DAY CYCLE)
     Route: 065
     Dates: start: 20210819, end: 20211125
  10. DARATUMUMAB [Suspect]
     Active Substance: DARATUMUMAB
     Dosage: EVERY 4 WEEKS (DAY 1 OF A 28DAY CYCLE)
     Route: 065
     Dates: start: 20211223, end: 20220224
  11. DARATUMUMAB [Suspect]
     Active Substance: DARATUMUMAB
     Dosage: EVERY 4 WEEKS (DAY 1 OF A 28DAY CYCLE)
     Route: 065
     Dates: start: 20220407, end: 20221117

REACTIONS (2)
  - Thrombocytopenia [Recovering/Resolving]
  - Off label use [Unknown]
